FAERS Safety Report 6820932-4 (Version None)
Quarter: 2010Q3

REPORT INFORMATION
  Report Type: 
  Country: None (occurrence: None)
  Receive Date: 20100707
  Receipt Date: 20070828
  Transmission Date: 20110219
  Serious: No
  Sender: FDA-Public Use
  Company Number: US-PFIZER INC-2007071487

PATIENT
  Sex: Female
  Weight: 68.2 kg

DRUGS (5)
  1. ZOLOFT [Suspect]
     Indication: IRRITABLE BOWEL SYNDROME
     Dates: start: 20070801
  2. ZOLOFT [Suspect]
     Route: 048
     Dates: start: 19910101, end: 20070201
  3. SERTRALINE [Suspect]
     Indication: IRRITABLE BOWEL SYNDROME
     Dates: start: 20070201, end: 20070201
  4. PHENAZOPYRIDINE HCL TAB [Concomitant]
  5. BENTYL [Concomitant]

REACTIONS (2)
  - ADVERSE EVENT [None]
  - DRUG INEFFECTIVE [None]
